FAERS Safety Report 4958815-7 (Version None)
Quarter: 2006Q1

REPORT INFORMATION
  Report Type: 
  Country: None (occurrence: None)
  Receive Date: 20060324
  Receipt Date: 20060314
  Transmission Date: 20060701
  Serious: Yes (Hospitalization)
  Sender: FDA-Public Use
  Company Number: 144931USA

PATIENT
  Age: 65 Year
  Sex: Male

DRUGS (2)
  1. PURINETHOL [Suspect]
     Indication: CROHN'S DISEASE
     Dosage: 50 MILLIGRAM QD ORAL
     Route: 048
     Dates: start: 20050101, end: 20060201
  2. ALLOPURINOL [Concomitant]

REACTIONS (10)
  - ASTHENIA [None]
  - BALANCE DISORDER [None]
  - DIARRHOEA [None]
  - FALL [None]
  - HAEMOGLOBIN DECREASED [None]
  - INTESTINAL RESECTION [None]
  - MOVEMENT DISORDER [None]
  - VERTIGO [None]
  - VOMITING [None]
  - WHITE BLOOD CELL COUNT DECREASED [None]
